FAERS Safety Report 8199648-0 (Version None)
Quarter: 2012Q1

REPORT INFORMATION
  Report Type: 
  Country: None (occurrence: None)
  Receive Date: 20120311
  Receipt Date: 20120302
  Transmission Date: 20120608
  Serious: Yes (Hospitalization)
  Sender: FDA-Public Use
  Company Number: SE-ASTRAZENECA-2012SE13114

PATIENT
  Age: 66 Year
  Sex: Male
  Weight: 83 kg

DRUGS (9)
  1. ACETAMINOPHEN [Concomitant]
  2. COLCHICIN [Concomitant]
     Indication: GOUT
     Dates: start: 20060707
  3. OMEPRAZOLE [Concomitant]
     Route: 048
  4. TRAMADOL HCL [Concomitant]
  5. ASPIRIN [Concomitant]
     Indication: ISCHAEMIC HEART DISEASE PROPHYLAXIS
     Dates: start: 20120207
  6. BRILIQUE [Suspect]
     Indication: ACUTE MYOCARDIAL INFARCTION
     Route: 048
     Dates: start: 20120207, end: 20120219
  7. METOPROLOL SUCCINATE [Concomitant]
     Indication: ISCHAEMIC HEART DISEASE PROPHYLAXIS
     Route: 048
     Dates: start: 20120208
  8. ENALAPRIL MALEATE [Concomitant]
     Indication: HYPERTENSION
     Dates: start: 20101129
  9. SIMVASTATIN [Concomitant]
     Indication: HYPERLIPIDAEMIA
     Dates: start: 20120207

REACTIONS (4)
  - PAIN IN EXTREMITY [None]
  - HYPERURICAEMIA [None]
  - JOINT SWELLING [None]
  - GOUT [None]
